FAERS Safety Report 6555236-0 (Version None)
Quarter: 2010Q1

REPORT INFORMATION
  Report Type: 
  Country: None (occurrence: None)
  Receive Date: 20100128
  Receipt Date: 20081217
  Transmission Date: 20100710
  Serious: No
  Sender: FDA-Public Use
  Company Number: A0759081A

PATIENT
  Age: 38 Year
  Sex: Female

DRUGS (1)
  1. BUPROPION [Suspect]
     Indication: DEPRESSION
     Dosage: 100MG PER DAY
     Route: 048
     Dates: start: 20080901

REACTIONS (3)
  - ACNE [None]
  - ACNE PUSTULAR [None]
  - FACIAL PAIN [None]
